FAERS Safety Report 16837146 (Version 1)
Quarter: 2019Q3

REPORT INFORMATION
  Report Type: Spontaneous
  Country: BR (occurrence: BR)
  Receive Date: 20190923
  Receipt Date: 20190923
  Transmission Date: 20191005
  Serious: No
  Sender: FDA-Public Use
  Company Number: BR-NOVEN PHARMACEUTICALS, INC.-BR2019000212

PATIENT

DRUGS (1)
  1. ESTRADIOL/NORETHISTERONE ACETATE [Suspect]
     Active Substance: ESTRADIOL\NORETHINDRONE ACETATE
     Indication: MENOPAUSE
     Dosage: 1 DF, Q96H
     Route: 062
     Dates: start: 20190201

REACTIONS (7)
  - Off label use [Not Recovered/Not Resolved]
  - Hypotension [Recovering/Resolving]
  - Fatigue [Recovering/Resolving]
  - Pain in extremity [Recovering/Resolving]
  - Somnolence [Recovering/Resolving]
  - Drug ineffective [Recovering/Resolving]
  - Feeling hot [Recovering/Resolving]

NARRATIVE: CASE EVENT DATE: 2019
